FAERS Safety Report 20950604 (Version 1)
Quarter: 2022Q2

REPORT INFORMATION
  Report Type: Spontaneous
  Country: US (occurrence: US)
  Receive Date: 20220613
  Receipt Date: 20220613
  Transmission Date: 20220721
  Serious: Yes (Other)
  Sender: FDA-Public Use
  Company Number: US-BAYER-2022A081599

PATIENT
  Age: 20 Year
  Sex: Female

DRUGS (1)
  1. ASPIRIN [Suspect]
     Active Substance: ASPIRIN

REACTIONS (9)
  - Suicide attempt [None]
  - Intentional overdose [None]
  - Toxicity to various agents [None]
  - Vomiting [None]
  - Dyspnoea [None]
  - Tinnitus [None]
  - Metabolic acidosis [None]
  - Metabolic alkalosis [None]
  - Respiratory alkalosis [None]
